FAERS Safety Report 23533644 (Version 1)
Quarter: 2024Q1

REPORT INFORMATION
  Report Type: Spontaneous
  Country: US (occurrence: US)
  Receive Date: 20240216
  Receipt Date: 20240216
  Transmission Date: 20240409
  Serious: Yes (Other)
  Sender: FDA-Public Use
  Company Number: US-OTSUKA-2024_003661

PATIENT
  Sex: Female

DRUGS (3)
  1. ABILIFY [Suspect]
     Active Substance: ARIPIPRAZOLE
     Indication: Product used for unknown indication
     Dosage: UNK
     Route: 065
  2. NEXIUM I.V. [Suspect]
     Active Substance: ESOMEPRAZOLE SODIUM
     Indication: Product used for unknown indication
     Dosage: UNK
     Route: 065
  3. DEPAKOTE [Suspect]
     Active Substance: DIVALPROEX SODIUM
     Indication: Mental disorder
     Dosage: UNK (TWICE DAILY OR 3 TIMES DAILY)
     Route: 065

REACTIONS (5)
  - Drug dependence [Unknown]
  - Hypersensitivity [Unknown]
  - Hernia [Unknown]
  - Wrong product administered [Unknown]
  - Maternal exposure during pregnancy [Unknown]
